FAERS Safety Report 16943581 (Version 1)
Quarter: 2019Q4

REPORT INFORMATION
  Report Type: Spontaneous
  Country: US (occurrence: US)
  Receive Date: 20191022
  Receipt Date: 20191022
  Transmission Date: 20200122
  Serious: No
  Sender: FDA-Public Use
  Company Number: US-CELGENEUS-USA-20191006235

PATIENT
  Sex: Male

DRUGS (1)
  1. OTEZLA [Suspect]
     Active Substance: APREMILAST
     Indication: PSORIASIS
     Route: 048
     Dates: start: 20190924, end: 20191013

REACTIONS (6)
  - Abdominal discomfort [Unknown]
  - Diarrhoea [Unknown]
  - Flatulence [Unknown]
  - Headache [Unknown]
  - Tremor [Unknown]
  - Nausea [Unknown]

NARRATIVE: CASE EVENT DATE: 2019
